FAERS Safety Report 18265401 (Version 1)
Quarter: 2020Q3

REPORT INFORMATION
  Report Type: Other
  Country: US (occurrence: US)
  Receive Date: 20200914
  Receipt Date: 20200914
  Transmission Date: 20201103
  Serious: No
  Sender: FDA-Public Use
  Company Number: US-LEADIANT BIOSCIENCES INC-2020STPI000188

PATIENT
  Age: 56 Year
  Sex: Female

DRUGS (3)
  1. GLEOSTINE [Concomitant]
     Active Substance: LOMUSTINE
  2. MATULANE [Suspect]
     Active Substance: PROCARBAZINE HYDROCHLORIDE
     Indication: BRAIN NEOPLASM MALIGNANT
     Dosage: 50 MG, TWO CAPSULES FOR 14 DAYS
     Route: 048
     Dates: start: 20200207
  3. GLEOSTINE [Concomitant]
     Active Substance: LOMUSTINE

REACTIONS (1)
  - Nausea [Not Recovered/Not Resolved]

NARRATIVE: CASE EVENT DATE: 20200423
